FAERS Safety Report 4601771-1 (Version None)
Quarter: 2005Q1

REPORT INFORMATION
  Report Type: 
  Country: None (occurrence: None)
  Receive Date: 20050128
  Receipt Date: 20040722
  Transmission Date: 20050727
  Serious: Yes (Hospitalization)
  Sender: FDA-Public Use
  Company Number: 139595USA

PATIENT
  Age: 41 Year
  Sex: Male

DRUGS (4)
  1. COPAXONE [Suspect]
     Indication: MULTIPLE SCLEROSIS
     Dosage: 20 MILLIGRAM QD; SUBCUTANEOUS
     Route: 058
     Dates: end: 20040701
  2. EFFEXOR [Concomitant]
  3. ACIPHEX [Concomitant]
  4. AMANTADINE [Concomitant]

REACTIONS (8)
  - ASTHENIA [None]
  - CHEST PAIN [None]
  - DIZZINESS [None]
  - DYSPNOEA [None]
  - HEADACHE [None]
  - HYPOTENSION [None]
  - PAIN IN EXTREMITY [None]
  - VOMITING [None]
